FAERS Safety Report 5345071-3 (Version None)
Quarter: 2007Q2

REPORT INFORMATION
  Report Type: 
  Country: None (occurrence: None)
  Receive Date: 20070420
  Receipt Date: 20070222
  Transmission Date: 20071010
  Serious: Yes (Hospitalization)
  Sender: FDA-Public Use
  Company Number: 153280USA

PATIENT
  Age: 20 Year
  Sex: Female

DRUGS (1)
  1. MINOCYCLINE HCL [Suspect]
     Indication: ACNE
     Dosage: ORAL
     Route: 048
     Dates: start: 20060701, end: 20060822

REACTIONS (7)
  - ALVEOLITIS ALLERGIC [None]
  - ARTHRALGIA [None]
  - DERMATITIS ALLERGIC [None]
  - DRUG HYPERSENSITIVITY [None]
  - ENCEPHALITIS ALLERGIC [None]
  - NEPHRITIS INTERSTITIAL [None]
  - PYREXIA [None]
